FAERS Safety Report 9491017 (Version 1)
Quarter: 2013Q3

REPORT INFORMATION
  Report Type: Spontaneous
  Country: US (occurrence: US)
  Receive Date: 20130830
  Receipt Date: 20130830
  Transmission Date: 20140515
  Serious: No
  Sender: FDA-Public Use
  Company Number: US-PFIZER INC-2013250944

PATIENT
  Sex: Female

DRUGS (1)
  1. LYRICA [Suspect]
     Indication: SCIATICA
     Dosage: UNK
     Dates: start: 201308

REACTIONS (2)
  - Fatigue [Unknown]
  - Weight increased [Unknown]
